FAERS Safety Report 17024494 (Version 1)
Quarter: 2019Q4

REPORT INFORMATION
  Report Type: Spontaneous
  Country: NL (occurrence: NL)
  Receive Date: 20191113
  Receipt Date: 20191113
  Transmission Date: 20200122
  Serious: Yes (Other)
  Sender: FDA-Public Use
  Company Number: NL-TEVA-2019-NL-1136453

PATIENT
  Age: 46 Year
  Sex: Female
  Weight: 64 kg

DRUGS (5)
  1. IRBESARTAN AND HYDROCHLOROTHIAZIDE TABLET [Suspect]
     Active Substance: HYDROCHLOROTHIAZIDE\IRBESARTAN
     Indication: PRODUCT USED FOR UNKNOWN INDICATION
     Dosage: 1 PER DAY 1 DOSAGE FORMS
     Dates: start: 201610, end: 201910
  2. AMLODIPINE [Concomitant]
     Active Substance: AMLODIPINE BESYLATE
     Dates: start: 201610
  3. METROPOLOL [Concomitant]
     Active Substance: METOPROLOL
  4. MAGNESIUM - METARELAX [Concomitant]
     Dosage: MANY YEARS EARLIER
  5. AMITRIPTYLINE PIL [Concomitant]

REACTIONS (2)
  - Basal cell carcinoma [Not Recovered/Not Resolved]
  - Skin disorder [Unknown]

NARRATIVE: CASE EVENT DATE: 2019
